FAERS Safety Report 7461399-5 (Version None)
Quarter: 2011Q2

REPORT INFORMATION
  Report Type: 
  Country: None (occurrence: None)
  Receive Date: 20110428
  Receipt Date: 20110218
  Transmission Date: 20111010
  Serious: Yes (Hospitalization)
  Sender: FDA-Public Use
  Company Number: 2011GW000112

PATIENT
  Age: 80 Year
  Sex: Male

DRUGS (2)
  1. ZYCLARA [Suspect]
     Indication: ACTINIC KERATOSIS
     Dosage: 3.75 PCT;HS;TOP
     Route: 061
     Dates: start: 20100101
  2. ALDARA [Concomitant]

REACTIONS (8)
  - ARTERITIS [None]
  - DILATATION INTRAHEPATIC DUCT ACQUIRED [None]
  - PANCREATITIS ACUTE [None]
  - BLOOD BILIRUBIN INCREASED [None]
  - CHEST PAIN [None]
  - INFLUENZA LIKE ILLNESS [None]
  - HIGH DENSITY LIPOPROTEIN DECREASED [None]
  - TOTAL CHOLESTEROL/HDL RATIO DECREASED [None]
